FAERS Safety Report 24388353 (Version 2)
Quarter: 2025Q1

REPORT INFORMATION
  Report Type: Spontaneous
  Country: US (occurrence: US)
  Receive Date: 20241002
  Receipt Date: 20250323
  Transmission Date: 20250409
  Serious: No
  Sender: SANOFI AVENTIS
  Company Number: US-SA-2024SA276214

PATIENT
  Age: 69 Year
  Sex: Female

DRUGS (1)
  1. DUPIXENT [Suspect]
     Active Substance: DUPILUMAB
     Indication: Dermatitis atopic
     Dosage: 300 MG, QOW
     Route: 058

REACTIONS (6)
  - Skin weeping [Unknown]
  - Haemorrhage [Unknown]
  - Sleep disorder due to general medical condition, insomnia type [Unknown]
  - Pruritus [Unknown]
  - Rash [Unknown]
  - Dermatitis atopic [Unknown]
